FAERS Safety Report 8121831-0 (Version None)
Quarter: 2012Q1

REPORT INFORMATION
  Report Type: 
  Country: None (occurrence: None)
  Receive Date: 20120208
  Receipt Date: 20120202
  Transmission Date: 20120608
  Serious: Yes (Other)
  Sender: FDA-Public Use
  Company Number: US-PFIZER INC-2012030266

PATIENT

DRUGS (11)
  1. VENLAFAXINE HCL [Suspect]
     Dosage: UNK
  2. LISINOPRIL [Concomitant]
     Dosage: 20 MG, (DAILY)
  3. ABILIFY [Concomitant]
     Dosage: 2.5 MG, (DAILY)
  4. CLONAZEPAM [Concomitant]
     Dosage: 2 MG, AS NEEDED (AS NEEDED TWICE DAILY)
  5. FISH OIL [Concomitant]
     Dosage: UNK, DAILY
  6. EFFEXOR XR [Suspect]
     Dosage: 150 MG, (TWO DAILY)
  7. SYNTHROID [Concomitant]
     Dosage: 0.150, 1X/DAY (ONCE DAILY)
  8. PROZAC [Concomitant]
     Dosage: 20 MG 3 DAILY
  9. MULTI-VITAMINS [Concomitant]
     Dosage: UNK
  10. VITAMIN B-12 [Concomitant]
     Dosage: UNK, DAILY
  11. EFFEXOR XR [Suspect]
     Dosage: 150 MG, 1X/DAY

REACTIONS (7)
  - OSTEOARTHRITIS [None]
  - DRUG INEFFECTIVE [None]
  - HYPERTHYROIDISM [None]
  - DEPRESSION [None]
  - HYPERTENSION [None]
  - FIBROMYALGIA [None]
  - PAIN [None]
